FAERS Safety Report 10984999 (Version 4)
Quarter: 2015Q2

REPORT INFORMATION
  Report Type: Spontaneous
  Country: US (occurrence: US)
  Receive Date: 20150403
  Receipt Date: 20150521
  Transmission Date: 20150821
  Serious: Yes (Hospitalization)
  Sender: FDA-Public Use
  Company Number: US-ACTELION-A-US2015-115601

PATIENT
  Age: 73 Year
  Sex: Female
  Weight: 54.42 kg

DRUGS (3)
  1. ADCIRCA [Suspect]
     Active Substance: TADALAFIL
     Indication: PULMONARY HYPERTENSION
     Dosage: UNK
     Route: 065
     Dates: end: 20150504
  2. OPSUMIT [Suspect]
     Active Substance: MACITENTAN
     Indication: PULMONARY HYPERTENSION
     Dosage: 10 MG, QD
     Route: 048
     Dates: end: 20150504
  3. TYVASO [Suspect]
     Active Substance: TREPROSTINIL
     Indication: PULMONARY HYPERTENSION
     Dosage: 18-54 MCG, QID
     Route: 055
     Dates: start: 20150210, end: 20150504

REACTIONS (10)
  - Asthenia [Unknown]
  - Dizziness [Unknown]
  - Musculoskeletal chest pain [Unknown]
  - Feeling abnormal [Unknown]
  - Night sweats [Unknown]
  - Dyspnoea [Unknown]
  - Oxygen saturation decreased [Unknown]
  - Pneumonia [Unknown]
  - Pyrexia [Unknown]
  - Lethargy [Unknown]
